FAERS Safety Report 13558964 (Version 1)
Quarter: 2017Q2

REPORT INFORMATION
  Report Type: Spontaneous
  Country: US (occurrence: US)
  Receive Date: 20170518
  Receipt Date: 20170518
  Transmission Date: 20170830
  Serious: No
  Sender: FDA-Public Use
  Company Number: US-SHIRE-US201710027

PATIENT
  Age: 67 Year
  Sex: Female
  Weight: 68.27 kg

DRUGS (16)
  1. BIOTIN [Concomitant]
     Active Substance: BIOTIN
     Indication: ALOPECIA
     Dosage: 5000 ?G, 1X/DAY:QD
     Route: 048
     Dates: start: 2015
  2. VITAMIN D3 [Concomitant]
     Active Substance: CHOLECALCIFEROL
     Indication: OSTEOPENIA
     Dosage: 1000 IU, 1X/DAY:QD
     Route: 048
  3. VITAMIN E                          /00110501/ [Concomitant]
     Active Substance: TOCOPHEROL
     Indication: HAIR DISORDER
     Dosage: 400 IU, 1X/DAY:QD
     Route: 048
     Dates: start: 2015
  4. PANTOPRAZOLE [Concomitant]
     Active Substance: PANTOPRAZOLE
     Indication: REFLUX GASTRITIS
     Dosage: 40 MG, 1X/DAY:QD
     Route: 048
     Dates: start: 1997
  5. BYSTOLIC [Concomitant]
     Active Substance: NEBIVOLOL HYDROCHLORIDE
     Indication: HEART RATE ABNORMAL
  6. VITAMIN C [Concomitant]
     Active Substance: ASCORBIC ACID
     Indication: ALOPECIA
     Dosage: 500 MG, 1X/DAY:QD
     Route: 048
     Dates: start: 2015
  7. VITAMIN E                          /00110501/ [Concomitant]
     Active Substance: TOCOPHEROL
     Indication: SKIN DISORDER
  8. FLAXSEED OIL                       /01649403/ [Concomitant]
     Indication: BLOOD CHOLESTEROL INCREASED
     Dosage: 1000 MG, 1X/DAY:QD
     Route: 048
  9. FERROUS SULFATE. [Concomitant]
     Active Substance: FERROUS SULFATE
     Indication: ANAEMIA
     Dosage: 50 MG, QOD
     Route: 048
  10. LYCOPENE [Concomitant]
     Active Substance: LYCOPENE
     Indication: ALOPECIA
     Dosage: 12 MG, 1X/DAY:QD
     Route: 048
     Dates: start: 2015
  11. XIIDRA [Suspect]
     Active Substance: LIFITEGRAST
     Indication: DRY EYE
     Dosage: 1 GTT EACH EYE, 2X/DAY:BID
     Route: 047
     Dates: start: 20170324, end: 20170421
  12. VITAMIN B12 [Concomitant]
     Active Substance: CYANOCOBALAMIN
     Indication: VITAMIN B12 DEFICIENCY
     Dosage: 2000 ?G, 1X/DAY:QD
     Route: 048
  13. FOLIC ACID. [Concomitant]
     Active Substance: FOLIC ACID
     Indication: INFLAMMATION
     Dosage: 800 ?G, 1X/DAY:QD
     Route: 048
     Dates: start: 2017
  14. BYSTOLIC [Concomitant]
     Active Substance: NEBIVOLOL HYDROCHLORIDE
     Indication: HYPERTENSION
     Dosage: 2.5 MG (HALF TABLET), 1X/DAY:QD
     Route: 048
     Dates: start: 2015
  15. LEVOTHYROXINE. [Concomitant]
     Active Substance: LEVOTHYROXINE
     Indication: HYPOTHYROIDISM
     Dosage: 88 ?G, 1X/DAY:QD
     Route: 048
     Dates: start: 1996
  16. BLACKCURRANT C [Concomitant]
     Indication: ALOPECIA
     Dosage: 500 MG, 1X/DAY:QD
     Route: 048
     Dates: start: 2015

REACTIONS (8)
  - Instillation site discomfort [Recovering/Resolving]
  - Sinusitis [Recovering/Resolving]
  - Dysphonia [Not Recovered/Not Resolved]
  - Secretion discharge [Recovered/Resolved]
  - Dacryostenosis acquired [Recovering/Resolving]
  - Localised infection [Recovering/Resolving]
  - Dysgeusia [Unknown]
  - Lacrimation increased [Recovered/Resolved]

NARRATIVE: CASE EVENT DATE: 20170324
